FAERS Safety Report 16059421 (Version 16)
Quarter: 2022Q3

REPORT INFORMATION
  Report Type: Report from Study
  Country: CA (occurrence: CA)
  Receive Date: 20190311
  Receipt Date: 20220909
  Transmission Date: 20221027
  Serious: Yes (Hospitalization, Other)
  Sender: FDA-Public Use
  Company Number: CA-TAKEDA-2018TUS025419

PATIENT
  Age: 43 Year
  Sex: Female

DRUGS (30)
  1. VEDOLIZUMAB [Suspect]
     Active Substance: VEDOLIZUMAB
     Indication: Crohn^s disease
     Dosage: 300 MILLIGRAM
     Route: 042
     Dates: start: 20150729
  2. VEDOLIZUMAB [Suspect]
     Active Substance: VEDOLIZUMAB
     Dosage: 300 MILLIGRAM, Q4WEEKS
     Route: 042
     Dates: start: 20180904
  3. VEDOLIZUMAB [Suspect]
     Active Substance: VEDOLIZUMAB
     Dosage: 300 MILLIGRAM, Q4WEEKS
     Route: 042
  4. VEDOLIZUMAB [Suspect]
     Active Substance: VEDOLIZUMAB
     Dosage: 300 MILLIGRAM
     Route: 042
     Dates: start: 20190808
  5. VEDOLIZUMAB [Suspect]
     Active Substance: VEDOLIZUMAB
     Dosage: 300 MILLIGRAM
     Route: 042
  6. VEDOLIZUMAB [Suspect]
     Active Substance: VEDOLIZUMAB
     Dosage: 300 MILLIGRAM
     Route: 042
  7. VEDOLIZUMAB [Suspect]
     Active Substance: VEDOLIZUMAB
     Dosage: 300 MILLIGRAM
     Route: 042
  8. VEDOLIZUMAB [Suspect]
     Active Substance: VEDOLIZUMAB
     Dosage: 300 MILLIGRAM, Q4WEEKS
     Route: 042
     Dates: start: 20201022
  9. VEDOLIZUMAB [Suspect]
     Active Substance: VEDOLIZUMAB
     Dosage: 300 MILLIGRAM, Q4WEEKS
     Route: 042
  10. VEDOLIZUMAB [Suspect]
     Active Substance: VEDOLIZUMAB
     Dosage: 300 MILLIGRAM, Q4WEEKS
     Route: 042
  11. VEDOLIZUMAB [Suspect]
     Active Substance: VEDOLIZUMAB
     Dosage: 300 MILLIGRAM, Q4WEEKS
     Route: 042
  12. VEDOLIZUMAB [Suspect]
     Active Substance: VEDOLIZUMAB
     Dosage: 300 MILIGRAM, Q4WEEKS
     Route: 042
  13. VEDOLIZUMAB [Suspect]
     Active Substance: VEDOLIZUMAB
     Dosage: 300 MILLIGRAM
     Route: 042
     Dates: start: 20190808
  14. VEDOLIZUMAB [Suspect]
     Active Substance: VEDOLIZUMAB
     Dosage: 300 MILLIGRAM, Q4WEEKS
     Route: 042
     Dates: start: 20201022
  15. VEDOLIZUMAB [Suspect]
     Active Substance: VEDOLIZUMAB
     Dosage: 300 MILLIGRAM, Q4WEEKS
     Route: 042
  16. HUMIRA [Concomitant]
     Active Substance: ADALIMUMAB
     Dosage: UNK
  17. DECADRON [Concomitant]
     Active Substance: DEXAMETHASONE
     Dosage: UNK
  18. METHOTREXATE [Concomitant]
     Active Substance: METHOTREXATE
     Dosage: UNK
  19. SULFATRIM [Concomitant]
     Active Substance: SULFAMETHOXAZOLE\TRIMETHOPRIM
     Dosage: UNK
  20. OXYCODONE HYDROCHLORIDE [Concomitant]
     Active Substance: OXYCODONE HYDROCHLORIDE
     Dosage: UNK
  21. PREVACID [Concomitant]
     Active Substance: LANSOPRAZOLE
     Dosage: UNK
  22. .ALPHA.-TOCOPHEROL [Concomitant]
     Active Substance: .ALPHA.-TOCOPHEROL
     Dosage: UNK
  23. FOLIC ACID [Concomitant]
     Active Substance: FOLIC ACID
     Dosage: UNK
  24. CALCIUM [Concomitant]
     Active Substance: CALCIUM
     Dosage: UNK
  25. POTASSIUM [Concomitant]
     Active Substance: POTASSIUM
     Dosage: UNK
  26. HYDROCHLOROTHIAZIDE [Concomitant]
     Active Substance: HYDROCHLOROTHIAZIDE
     Dosage: UNK
  27. CITALOPRAM [Concomitant]
     Active Substance: CITALOPRAM HYDROBROMIDE
     Dosage: UNK
  28. DESYREL [Concomitant]
     Active Substance: TRAZODONE HYDROCHLORIDE
     Dosage: UNK
  29. PROPRANOLOL HYDROCHLORIDE [Concomitant]
     Active Substance: PROPRANOLOL HYDROCHLORIDE
     Dosage: UNK
  30. SUCRALFATE [Concomitant]
     Active Substance: SUCRALFATE
     Dosage: 1 GRAM
     Route: 048

REACTIONS (22)
  - Intestinal obstruction [Unknown]
  - Acute oesophageal mucosal lesion [Unknown]
  - Precancerous cells present [Unknown]
  - Gastric ulcer [Unknown]
  - Crohn^s disease [Unknown]
  - Impaired gastric emptying [Unknown]
  - Anal abscess [Unknown]
  - Rectal discharge [Unknown]
  - Anorectal swelling [Unknown]
  - Stoma site abscess [Unknown]
  - Abdominal pain upper [Unknown]
  - Pain [Unknown]
  - Dyspnoea [Unknown]
  - Abdominal pain [Unknown]
  - Abdominal distension [Unknown]
  - Flatulence [Unknown]
  - Dyspepsia [Unknown]
  - Constipation [Unknown]
  - Drug ineffective [Unknown]
  - Drug level decreased [Unknown]
  - Nausea [Unknown]
  - Off label use [Unknown]

NARRATIVE: CASE EVENT DATE: 20180904
